FAERS Safety Report 25808995 (Version 3)
Quarter: 2025Q3

REPORT INFORMATION
  Report Type: Spontaneous
  Country: EU (occurrence: EU)
  Receive Date: 20250916
  Receipt Date: 20250922
  Transmission Date: 20251021
  Serious: Yes (Other)
  Sender: PFIZER
  Company Number: EU-CHEPLA-2025010502

PATIENT
  Age: 23 Year
  Sex: Male

DRUGS (6)
  1. LEVETIRACETAM [Suspect]
     Active Substance: LEVETIRACETAM
     Indication: Generalised tonic-clonic seizure
  2. CLONAZEPAM [Suspect]
     Active Substance: CLONAZEPAM
     Indication: Generalised tonic-clonic seizure
  3. VALPROATE [Suspect]
     Active Substance: VALPROIC ACID
     Indication: Generalised tonic-clonic seizure
  4. LAMOTRIGINE [Suspect]
     Active Substance: LAMOTRIGINE
     Indication: Generalised tonic-clonic seizure
  5. ZONISAMIDE [Suspect]
     Active Substance: ZONISAMIDE
     Indication: Generalised tonic-clonic seizure
  6. PERAMPANEL [Suspect]
     Active Substance: PERAMPANEL
     Indication: Generalised tonic-clonic seizure

REACTIONS (8)
  - Generalised tonic-clonic seizure [Unknown]
  - Condition aggravated [Unknown]
  - Petit mal epilepsy [Unknown]
  - Mental impairment [Unknown]
  - Mental disorder [Unknown]
  - Therapy partial responder [Unknown]
  - Drug resistance [Unknown]
  - Progressive myoclonic epilepsy [Unknown]
